FAERS Safety Report 4353450-6 (Version None)
Quarter: 2004Q2

REPORT INFORMATION
  Report Type: 
  Country: None (occurrence: None)
  Receive Date: 20040505
  Receipt Date: 20040505
  Transmission Date: 20050107
  Serious: Yes (Hospitalization)
  Sender: FDA-Public Use
  Company Number: None

PATIENT
  Age: 48 Year
  Sex: Male
  Weight: 87 kg

DRUGS (8)
  1. SIMVASTATIN [Suspect]
     Indication: HYPERLIPIDAEMIA
     Dosage: 40 MG, 40 MG DAI, ORAL
     Route: 048
     Dates: end: 20030731
  2. SERTRALINE HCL [Concomitant]
  3. LISINOPRIL [Concomitant]
  4. LORAZEPAM [Concomitant]
  5. HYDROCODONE 5/ACETAMINOPHEN [Concomitant]
  6. SIMVASTATIN [Concomitant]
  7. NAPROXEN [Concomitant]
  8. AZITHROMYCIN [Concomitant]

REACTIONS (1)
  - MYOSITIS [None]
